FAERS Safety Report 10053498 (Version 1)
Quarter: 2014Q2

REPORT INFORMATION
  Report Type: Report from Study
  Country: US (occurrence: US)
  Receive Date: 20140402
  Receipt Date: 20140402
  Transmission Date: 20141212
  Serious: Yes (Other)
  Sender: FDA-Public Use
  Company Number: US-ABBVIE-14P-163-1216598-00

PATIENT
  Sex: Female

DRUGS (10)
  1. HUMIRA [Suspect]
     Indication: RHEUMATOID ARTHRITIS
     Dates: start: 2009
  2. HCTZ [Suspect]
     Indication: PRODUCT USED FOR UNKNOWN INDICATION
     Dates: end: 201403
  3. CELEBREX [Suspect]
     Indication: PRODUCT USED FOR UNKNOWN INDICATION
     Dates: end: 201403
  4. MUSCLE RELAXERS [Suspect]
     Indication: PRODUCT USED FOR UNKNOWN INDICATION
     Dates: start: 201306, end: 201401
  5. XANAX [Concomitant]
     Indication: INSOMNIA
     Dosage: AT NIGHT
  6. LIDOCAINE PATCHES [Concomitant]
     Indication: SPINAL OSTEOARTHRITIS
     Dates: start: 2005
  7. LIDOCAINE PATCHES [Concomitant]
     Indication: RHEUMATOID ARTHRITIS
  8. SYNTHROID [Concomitant]
     Indication: PRODUCT USED FOR UNKNOWN INDICATION
  9. ZETIA [Concomitant]
     Indication: BLOOD CHOLESTEROL
  10. FOSAMAX [Concomitant]
     Indication: OSTEOPOROSIS
     Dates: start: 2013

REACTIONS (9)
  - Hyperthyroidism [Not Recovered/Not Resolved]
  - Hypothyroidism [Not Recovered/Not Resolved]
  - Blood cholesterol abnormal [Unknown]
  - Dizziness [Recovered/Resolved]
  - Nausea [Recovered/Resolved]
  - Osteoporosis [Unknown]
  - Vitamin D decreased [Unknown]
  - Renal impairment [Unknown]
  - Urinary tract infection [Unknown]
